FAERS Safety Report 6154770-5 (Version None)
Quarter: 2009Q2

REPORT INFORMATION
  Report Type: 
  Country: None (occurrence: None)
  Receive Date: 20090414
  Receipt Date: 20090330
  Transmission Date: 20091009
  Serious: Yes (Other)
  Sender: FDA-Public Use
  Company Number: FR-GENENTECH-280921

PATIENT

DRUGS (3)
  1. RITUXIMAB [Suspect]
     Indication: IDIOPATHIC THROMBOCYTOPENIC PURPURA
     Dosage: 375 MG/M2, 1/WEEK
     Route: 042
  2. METHYLPREDNISOLONE 4MG TAB [Suspect]
     Indication: PREMEDICATION
     Dosage: 60 MG, 1/WEEK
     Route: 042
  3. PARACETAMOL [Suspect]
     Indication: PREMEDICATION
     Dosage: 1 G, 1/WEEK

REACTIONS (1)
  - SERUM SICKNESS [None]
